FAERS Safety Report 9165906 (Version 1)
Quarter: 2013Q1

REPORT INFORMATION
  Report Type: Spontaneous
  Country: US (occurrence: US)
  Receive Date: 20130315
  Receipt Date: 20130315
  Transmission Date: 20140127
  Serious: No
  Sender: FDA-Public Use
  Company Number: US-PFIZER INC-2013086618

PATIENT
  Age: 53 Year
  Sex: Female
  Weight: 89.8 kg

DRUGS (8)
  1. LYRICA [Suspect]
     Indication: NEURALGIA
     Dosage: UNK
     Dates: start: 201211
  2. LYRICA [Suspect]
     Dosage: UNK
  3. GABAPENTIN [Suspect]
     Indication: NEURALGIA
     Dosage: UNK
     Dates: start: 201201, end: 201210
  4. INSULIN [Concomitant]
     Indication: DIABETES MELLITUS
     Dosage: 15 IU, UNK
  5. METFORMIN [Concomitant]
     Indication: DIABETES MELLITUS
     Dosage: 500 MG, UNK
  6. CYMBALTA [Concomitant]
     Dosage: UNK
  7. ABILIFY [Concomitant]
     Dosage: UNK
  8. LORAZEPAM [Concomitant]
     Dosage: UNK

REACTIONS (2)
  - Drug ineffective [Unknown]
  - Neuralgia [Unknown]
